FAERS Safety Report 9027088 (Version 1)
Quarter: 2013Q1

REPORT INFORMATION
  Report Type: Spontaneous
  Country: JP (occurrence: JP)
  Receive Date: 20130123
  Receipt Date: 20130123
  Transmission Date: 20140127
  Serious: Yes (Other)
  Sender: FDA-Public Use
  Company Number: JP-PFIZER INC-2013022487

PATIENT
  Age: 47 Year
  Sex: 0

DRUGS (2)
  1. DIFLUCAN [Suspect]
     Indication: FUNGAL INFECTION
     Dosage: UNK
  2. TAKEPRON [Concomitant]

REACTIONS (3)
  - Altered state of consciousness [Recovered/Resolved]
  - Dysgeusia [Unknown]
  - Illusion [Unknown]
